FAERS Safety Report 18045234 (Version 2)
Quarter: 2020Q3

REPORT INFORMATION
  Report Type: Report from Study
  Country: CZ (occurrence: CZ)
  Receive Date: 20200720
  Receipt Date: 20200812
  Transmission Date: 20201103
  Serious: Yes (Hospitalization)
  Sender: FDA-Public Use
  Company Number: CZ-PFIZER INC-2020129149

PATIENT
  Age: 26 Year
  Sex: Male
  Weight: 86 kg

DRUGS (8)
  1. DAUNORUBICIN [Suspect]
     Active Substance: DAUNORUBICIN
     Indication: ACUTE MYELOID LEUKAEMIA
     Dosage: 124 MG, DAY 1?3
     Route: 042
     Dates: start: 20191026, end: 20191028
  2. FIDAXOMICIN [Concomitant]
     Active Substance: FIDAXOMICIN
     Indication: INFECTION PROPHYLAXIS
     Dosage: 200 MG, ALTERNATE DAY (QOD)
     Route: 048
     Dates: start: 20200203
  3. GLASDEGIB [Suspect]
     Active Substance: GLASDEGIB
     Indication: ACUTE MYELOID LEUKAEMIA
     Dosage: ONCE DAILY
     Route: 048
     Dates: start: 20191026, end: 20191215
  4. CYTARABINE. [Suspect]
     Active Substance: CYTARABINE
     Indication: ACUTE MYELOID LEUKAEMIA
     Dosage: 100 MG/M2, DAY 1?7 CONTINUOUSLY (INDUCTION)
     Route: 042
     Dates: start: 20191026, end: 20191101
  5. DAPSONE. [Concomitant]
     Active Substance: DAPSONE
     Indication: INFECTION PROPHYLAXIS
     Dosage: 100 MG, 1X/DAY
     Route: 048
     Dates: start: 20191119
  6. GLASDEGIB [Suspect]
     Active Substance: GLASDEGIB
     Dosage: ONCE DAILY
     Route: 048
     Dates: start: 20200306, end: 20200325
  7. GLASDEGIB [Suspect]
     Active Substance: GLASDEGIB
     Dosage: ONCE DAILY
     Route: 048
     Dates: start: 20200114, end: 20200130
  8. CYTARABINE. [Suspect]
     Active Substance: CYTARABINE
     Dosage: 3000 MG/M2, EVERY 12 HOUR DAY 1, 3, 5 (CONSOLIDATION)
     Route: 042
     Dates: start: 20191129, end: 20200311

REACTIONS (1)
  - Cellulitis [Recovered/Resolved]

NARRATIVE: CASE EVENT DATE: 20200325
